FAERS Safety Report 5188402-X (Version None)
Quarter: 2006Q4

REPORT INFORMATION
  Report Type: 
  Country: None (occurrence: None)
  Receive Date: 20061221
  Receipt Date: 20060911
  Transmission Date: 20070319
  Serious: Yes (Other)
  Sender: FDA-Public Use
  Company Number: US-SHR-US-2006-026628

PATIENT
  Age: 51 Year
  Sex: Male
  Weight: 76.19 kg

DRUGS (5)
  1. BETASERON [Suspect]
     Indication: RELAPSING-REMITTING MULTIPLE SCLEROSIS
     Dosage: 8 MIU, EVERY 2D
     Route: 058
     Dates: start: 20040220
  2. GLUCOPHAGE [Concomitant]
     Dosage: 500 MG, 2X/DAY
     Dates: start: 20060908
  3. EFFEXOR [Concomitant]
     Dosage: 37.5 MG, 1X/DAY
     Dates: start: 20040101
  4. BACLOFEN [Concomitant]
     Dosage: 20 MG, 3X/DAY
     Dates: start: 20040101
  5. KEFLEX [Concomitant]
     Dosage: 750 MG, 2X/DAY
     Dates: start: 20060905

REACTIONS (1)
  - DIABETES MELLITUS NON-INSULIN-DEPENDENT [None]
